FAERS Safety Report 17068952 (Version 1)
Quarter: 2019Q4

REPORT INFORMATION
  Report Type: Spontaneous
  Country: US (occurrence: US)
  Receive Date: 20191024
  Receipt Date: 20191024
  Transmission Date: 20200122
  Serious: No
  Sender: FDA-Public Use
  Company Number: None

PATIENT
  Age: 64 Year
  Sex: Male
  Weight: 88.45 kg

DRUGS (7)
  1. FINASTERIDE. [Concomitant]
     Active Substance: FINASTERIDE
  2. SELENIUM [Concomitant]
     Active Substance: SELENIUM
  3. VITAMIN D [Concomitant]
     Active Substance: VITAMIN D NOS
  4. TAMSULOSIN [Suspect]
     Active Substance: TAMSULOSIN
     Indication: PROSTATOMEGALY
     Dosage: ?          QUANTITY:1 DF DOSAGE FORM;?
     Route: 048
     Dates: start: 20170201, end: 20180120
  5. FISH OIL [Concomitant]
     Active Substance: FISH OIL
  6. VITAMIN B12 [Concomitant]
     Active Substance: CYANOCOBALAMIN
  7. MENS MULTIVITAMIN [Concomitant]

REACTIONS (2)
  - Prostatomegaly [None]
  - Eye disorder [None]

NARRATIVE: CASE EVENT DATE: 20180120
